FAERS Safety Report 4533339-X (Version None)
Quarter: 2004Q4

REPORT INFORMATION
  Report Type: 
  Country: None (occurrence: None)
  Receive Date: 20041206
  Receipt Date: 20040830
  Transmission Date: 20050328
  Serious: No
  Sender: FDA-Public Use
  Company Number: USA040876790

PATIENT
  Age: 56 Year
  Sex: Female
  Weight: 91 kg

DRUGS (4)
  1. PROZAC [Suspect]
     Indication: MAJOR DEPRESSION
     Dosage: 60 MG DAY
     Dates: end: 20040601
  2. CYMBALTA [Suspect]
     Indication: MAJOR DEPRESSION
     Dosage: 30 MG/ 1 DAY
     Dates: start: 20040828
  3. VIVACTIL [Concomitant]
  4. WELLBUTRIN (BUPROPION HYROCHLORIDE) [Concomitant]

REACTIONS (3)
  - DRUG INEFFECTIVE [None]
  - FATIGUE [None]
  - WEIGHT DECREASED [None]
